FAERS Safety Report 7737711-6 (Version None)
Quarter: 2011Q3

REPORT INFORMATION
  Report Type: 
  Country: None (occurrence: None)
  Receive Date: 20110908
  Receipt Date: 20110830
  Transmission Date: 20111222
  Serious: Yes (Hospitalization)
  Sender: FDA-Public Use
  Company Number: FR-BRISTOL-MYERS SQUIBB COMPANY-16022717

PATIENT
  Age: 83 Year
  Sex: Male

DRUGS (11)
  1. PLAVIX [Concomitant]
     Dosage: 1DF=75 UNITS NOS
     Route: 048
  2. ASPIRIN [Concomitant]
     Route: 048
  3. RAMIPRIL [Suspect]
     Route: 048
     Dates: end: 20110630
  4. NITROGLYCERIN [Suspect]
     Route: 062
     Dates: end: 20110702
  5. AMLODIPINE BESYLATE [Suspect]
     Route: 048
     Dates: end: 20110630
  6. METOPROLOL TARTRATE [Concomitant]
     Dosage: 1DF=100 UNITS NOS 0.5/DAY
     Route: 048
  7. MOVIPREP [Concomitant]
     Dosage: 3/D
     Route: 048
  8. ATARAX [Concomitant]
     Dosage: 1DF=25 UNITS NOS 2/D
     Route: 048
  9. NEXIUM [Concomitant]
     Route: 048
  10. PRAVASTATIN [Suspect]
     Route: 048
     Dates: end: 20110702
  11. VALSARTAN  AND HYDROCHLOROTHIAZIDE [Suspect]
     Dosage: 1DF=160MG/12.5 MG
     Route: 048
     Dates: start: 20110201, end: 20110719

REACTIONS (3)
  - ECZEMA [None]
  - ACUTE PULMONARY OEDEMA [None]
  - STAPHYLOCOCCAL BACTERAEMIA [None]
